FAERS Safety Report 13569248 (Version 1)
Quarter: 2017Q2

REPORT INFORMATION
  Report Type: Spontaneous
  Country: US (occurrence: US)
  Receive Date: 20170522
  Receipt Date: 20170522
  Transmission Date: 20170830
  Serious: No
  Sender: FDA-Public Use
  Company Number: US-SHIRE-US201710742

PATIENT
  Age: 61 Year
  Sex: Female
  Weight: 67.12 kg

DRUGS (11)
  1. ZYRTEC                             /00884302/ [Concomitant]
     Indication: SEASONAL ALLERGY
     Dosage: 10 MG, 1X/DAY:QD
     Route: 048
     Dates: start: 201703
  2. XIIDRA [Suspect]
     Active Substance: LIFITEGRAST
     Indication: DRY EYE
     Dosage: 1 GTT (BOTH EYES), 2X/DAY:BID
     Route: 047
     Dates: start: 201704, end: 20170507
  3. CYMBALTA [Concomitant]
     Active Substance: DULOXETINE HYDROCHLORIDE
     Indication: ANXIETY
  4. TEGRETOL [Concomitant]
     Active Substance: CARBAMAZEPINE
     Indication: TRIGEMINAL NEURALGIA
     Dosage: 200 MG, 3X/DAY:TID
     Route: 048
     Dates: start: 201605
  5. CLONAZEPAM. [Concomitant]
     Active Substance: CLONAZEPAM
     Indication: SLEEP DISORDER
  6. LIDOCAINE. [Concomitant]
     Active Substance: LIDOCAINE
     Indication: AUTOIMMUNE DISORDER
     Dosage: UNK, AS REQ^D
     Route: 048
     Dates: start: 2013
  7. NORTRIPTYLINE [Concomitant]
     Active Substance: NORTRIPTYLINE
     Indication: NERVE INJURY
     Dosage: 50 MG, 1X/DAY:QD
     Route: 048
     Dates: start: 201510
  8. PILOCARPINE. [Concomitant]
     Active Substance: PILOCARPINE
     Indication: DRY MOUTH
     Dosage: 5 MG, 3X/DAY:TID
     Route: 048
     Dates: start: 201510
  9. HYDROCODONE [Concomitant]
     Active Substance: HYDROCODONE
     Indication: AUTOIMMUNE DISORDER
     Dosage: 7.5-250 MG, OTHER (BID-TID)
     Route: 048
     Dates: start: 2016
  10. CYMBALTA [Concomitant]
     Active Substance: DULOXETINE HYDROCHLORIDE
     Indication: DEPRESSION
     Dosage: 60 MG, 1X/DAY:QD
     Route: 048
     Dates: start: 2014
  11. CLONAZEPAM. [Concomitant]
     Active Substance: CLONAZEPAM
     Indication: ANXIETY
     Dosage: 1 MG, 3X/DAY:TID
     Route: 048
     Dates: start: 201510

REACTIONS (1)
  - Instillation site pain [Not Recovered/Not Resolved]

NARRATIVE: CASE EVENT DATE: 201704
